FAERS Safety Report 24345799 (Version 1)
Quarter: 2024Q3

REPORT INFORMATION
  Report Type: Spontaneous
  Country: US (occurrence: US)
  Receive Date: 20240920
  Receipt Date: 20240920
  Transmission Date: 20241016
  Serious: Yes (Other)
  Sender: VIVUS
  Company Number: US-PPDUS-2024V1000618

PATIENT
  Age: 53 Year
  Sex: Female
  Weight: 74.91 kg

DRUGS (4)
  1. QSYMIA [Suspect]
     Active Substance: PHENTERMINE HYDROCHLORIDE\TOPIRAMATE
     Indication: Weight decreased
     Route: 048
     Dates: start: 20240131
  2. QSYMIA [Suspect]
     Active Substance: PHENTERMINE HYDROCHLORIDE\TOPIRAMATE
     Route: 048
     Dates: start: 202207
  3. QSYMIA [Suspect]
     Active Substance: PHENTERMINE HYDROCHLORIDE\TOPIRAMATE
     Indication: Weight decreased
     Route: 048
     Dates: start: 20240101, end: 20240130
  4. QSYMIA [Suspect]
     Active Substance: PHENTERMINE HYDROCHLORIDE\TOPIRAMATE
     Route: 048
     Dates: start: 202207

REACTIONS (9)
  - Suicidal ideation [Recovered/Resolved]
  - Oral discomfort [Recovered/Resolved]
  - Electrocardiogram abnormal [Unknown]
  - Drug hypersensitivity [Unknown]
  - Taste disorder [Recovered/Resolved]
  - Constipation [Unknown]
  - Blood potassium decreased [Recovering/Resolving]
  - Depression [Recovered/Resolved]
  - Incorrect product administration duration [Recovered/Resolved]

NARRATIVE: CASE EVENT DATE: 20220701
